FAERS Safety Report 17056323 (Version 2)
Quarter: 2019Q4

REPORT INFORMATION
  Report Type: Spontaneous
  Country: JP (occurrence: JP)
  Receive Date: 20191121
  Receipt Date: 20191209
  Transmission Date: 20200122
  Serious: Yes (Other)
  Sender: FDA-Public Use
  Company Number: JP-PFIZER INC-2019432904

PATIENT
  Age: 61 Year
  Sex: Male

DRUGS (12)
  1. CYMBALTA [Interacting]
     Active Substance: DULOXETINE HYDROCHLORIDE
     Dosage: 50 MG, DAILY
     Route: 048
     Dates: start: 20190917
  2. ALOSENN [SENNOSIDE A+B] [Concomitant]
     Dosage: 0.5 MG, 1X/DAY
     Route: 048
  3. MAGNESIUM OXIDE. [Concomitant]
     Active Substance: MAGNESIUM OXIDE
     Dosage: 500 MG, 3X/DAY
     Route: 048
  4. ETIZOLAM [Concomitant]
     Active Substance: ETIZOLAM
     Dosage: 1 MG, 2X/DAY
     Route: 048
  5. FAMOTIDINE. [Concomitant]
     Active Substance: FAMOTIDINE
     Dosage: 20 MG, 1X/DAY BEFORE BEDTIME
     Route: 048
     Dates: end: 20191005
  6. CYMBALTA [Interacting]
     Active Substance: DULOXETINE HYDROCHLORIDE
     Dosage: 60 MG, 1X/DAY
     Route: 048
     Dates: end: 20190916
  7. EFFEXOR [Suspect]
     Active Substance: VENLAFAXINE HYDROCHLORIDE
     Indication: DEPRESSION
     Dosage: 37.5 MG, 1X/DAY
     Route: 048
     Dates: start: 20190917
  8. SULPIRIDE [Concomitant]
     Active Substance: SULPIRIDE
     Dosage: 100 MG, 3X/DAY
     Route: 048
     Dates: end: 20190917
  9. SULPIRIDE [Concomitant]
     Active Substance: SULPIRIDE
     Dosage: 200 MG, 2X/DAY
     Dates: start: 20190917
  10. CYMBALTA [Interacting]
     Active Substance: DULOXETINE HYDROCHLORIDE
     Dosage: 40 MG, UNK
     Dates: start: 20191015
  11. VALSARTAN. [Concomitant]
     Active Substance: VALSARTAN
     Dosage: 80 MG, 1X/DAY
     Route: 048
  12. MOSAPRIDE CITRATE DIHYDRATE [Concomitant]
     Active Substance: MOSAPRIDE CITRATE DIHYDRATE
     Dosage: 5 MG, 2X/DAY
     Route: 048

REACTIONS (4)
  - Gastrointestinal haemorrhage [Recovering/Resolving]
  - Haemorrhage [Recovering/Resolving]
  - Abdominal pain upper [Recovering/Resolving]
  - Drug interaction [Recovering/Resolving]

NARRATIVE: CASE EVENT DATE: 20191005
